FAERS Safety Report 9495933 (Version 3)
Quarter: 2013Q4

REPORT INFORMATION
  Report Type: Spontaneous
  Country: IT (occurrence: IT)
  Receive Date: 20130903
  Receipt Date: 20131007
  Transmission Date: 20140711
  Serious: Yes (Death, Hospitalization)
  Sender: FDA-Public Use
  Company Number: IT-MYLANLABS-2013S1017077

PATIENT
  Age: 81 Year
  Sex: Female

DRUGS (9)
  1. TICLOPIDINE HYDROCHLORIDE [Suspect]
     Indication: CEREBROVASCULAR ACCIDENT
     Dates: start: 20130601, end: 20130622
  2. ZYPREXA [Suspect]
     Indication: BIPOLAR DISORDER
     Route: 048
     Dates: start: 20130524, end: 20130622
  3. ASACOL [Suspect]
     Indication: COLITIS ULCERATIVE
     Route: 048
     Dates: start: 20130412, end: 20130622
  4. ASACOL [Suspect]
     Route: 048
     Dates: start: 20130412, end: 20130622
  5. ANTRA /00661201/ [Concomitant]
     Indication: PRODUCT USED FOR UNKNOWN INDICATION
  6. EUTIROX [Concomitant]
     Indication: PRODUCT USED FOR UNKNOWN INDICATION
  7. LOSAZID [Concomitant]
     Indication: PRODUCT USED FOR UNKNOWN INDICATION
  8. SPIRIVA [Concomitant]
     Indication: PRODUCT USED FOR UNKNOWN INDICATION
     Route: 055
  9. FOLINA /00024201/ [Concomitant]
     Indication: PRODUCT USED FOR UNKNOWN INDICATION

REACTIONS (4)
  - Leukopenia [Recovered/Resolved]
  - Neutropenia [Recovered/Resolved]
  - Endocarditis [Fatal]
  - Sepsis [Fatal]
